FAERS Safety Report 13139712 (Version 2)
Quarter: 2017Q1

REPORT INFORMATION
  Report Type: Spontaneous
  Country: US (occurrence: US)
  Receive Date: 20170123
  Receipt Date: 20170215
  Transmission Date: 20170428
  Serious: Yes (Life-Threatening, Other)
  Sender: FDA-Public Use
  Company Number: US-009507513-1701USA008130

PATIENT
  Sex: Female

DRUGS (1)
  1. NEXPLANON [Suspect]
     Active Substance: ETONOGESTREL
     Indication: PRODUCT USED FOR UNKNOWN INDICATION
     Dosage: UNK, UNKNOWN
     Route: 059
     Dates: end: 20161226

REACTIONS (5)
  - Cerebrovascular accident [Unknown]
  - Thrombosis [Unknown]
  - Surgery [Unknown]
  - Seizure [Unknown]
  - Migraine [Unknown]

NARRATIVE: CASE EVENT DATE: 20161226
